FAERS Safety Report 7643825-1 (Version None)
Quarter: 2011Q3

REPORT INFORMATION
  Report Type: 
  Country: None (occurrence: None)
  Receive Date: 20110729
  Receipt Date: 20090302
  Transmission Date: 20111222
  Serious: Yes (Other)
  Sender: FDA-Public Use
  Company Number: US-GLAXOSMITHKLINE-A0771881A

PATIENT
  Age: 53 Year
  Sex: Female
  Weight: 62.3 kg

DRUGS (1)
  1. IMITREX [Suspect]
     Indication: MIGRAINE
     Dosage: 25MG UNKNOWN
     Route: 048
     Dates: start: 19930101

REACTIONS (2)
  - HYPOAESTHESIA ORAL [None]
  - DEAFNESS [None]
